FAERS Safety Report 6414360-3 (Version None)
Quarter: 2009Q4

REPORT INFORMATION
  Report Type: 
  Country: None (occurrence: None)
  Receive Date: 20091026
  Receipt Date: 20091012
  Transmission Date: 20100525
  Serious: Yes (Other)
  Sender: FDA-Public Use
  Company Number: GB-MYLANLABS-2009S1017803

PATIENT
  Age: 42 Year
  Sex: Male

DRUGS (7)
  1. VENLAFAXINE [Suspect]
     Indication: DRUG USE FOR UNKNOWN INDICATION
     Dates: start: 20090218
  2. VENLAFAXINE [Suspect]
  3. CHAMPIX /05703001/ [Suspect]
     Indication: SMOKING CESSATION THERAPY
     Route: 048
     Dates: start: 20090512, end: 20090819
  4. LITHIUM [Suspect]
     Indication: DRUG USE FOR UNKNOWN INDICATION
     Dates: start: 20081208
  5. LITHIUM [Suspect]
     Dates: start: 20090916
  6. QUETIAPINE [Suspect]
     Indication: DRUG USE FOR UNKNOWN INDICATION
     Dates: start: 20081216
  7. QUETIAPINE [Suspect]
     Dates: start: 20090916

REACTIONS (4)
  - ANXIETY [None]
  - BIPOLAR DISORDER [None]
  - DEPRESSION [None]
  - DRUG INEFFECTIVE [None]
